FAERS Safety Report 25831372 (Version 1)
Quarter: 2025Q3

REPORT INFORMATION
  Report Type: Spontaneous
  Country: US (occurrence: None)
  Receive Date: 20250920
  Receipt Date: 20250920
  Transmission Date: 20251021
  Serious: Yes (Other)
  Sender: FDA-CTU
  Company Number: None

PATIENT
  Age: 40 Year
  Sex: Female
  Weight: 81 kg

DRUGS (2)
  1. TIRZEPATIDE [Suspect]
     Active Substance: TIRZEPATIDE
     Indication: Weight decreased
     Route: 050
     Dates: start: 20250811, end: 20250916
  2. METAMUCIL [Concomitant]
     Active Substance: PLANTAGO SEED

REACTIONS (8)
  - Product use in unapproved indication [None]
  - Suspected counterfeit product [None]
  - Pruritus [None]
  - Burning sensation [None]
  - Urticaria [None]
  - Contusion [None]
  - Haematoma [None]
  - Physical product label issue [None]

NARRATIVE: CASE EVENT DATE: 20250916
